FAERS Safety Report 25059052 (Version 11)
Quarter: 2025Q4

REPORT INFORMATION
  Report Type: Spontaneous
  Country: CA (occurrence: CA)
  Receive Date: 20250310
  Receipt Date: 20251205
  Transmission Date: 20260118
  Serious: Yes (Other)
  Sender: PFIZER
  Company Number: CA-PFIZER INC-202500046847

PATIENT
  Age: 67 Year
  Sex: Male
  Weight: 79 kg

DRUGS (3)
  1. ABRILADA [Suspect]
     Active Substance: ADALIMUMAB-AFZB
     Indication: Colitis ulcerative
     Dosage: 1 DF (160MG WK0, 80MG WK2 THEN 40MG Q 2 WKS)
     Route: 058
     Dates: start: 20250226
  2. BENADRYL [Concomitant]
     Active Substance: DIPHENHYDRAMINE HYDROCHLORIDE
     Dosage: 50 MG
     Dates: start: 202503
  3. PURINETHOL [Concomitant]
     Active Substance: MERCAPTOPURINE
     Dosage: UNK

REACTIONS (15)
  - Rib fracture [Not Recovered/Not Resolved]
  - Fracture pain [Not Recovered/Not Resolved]
  - Fall [Not Recovered/Not Resolved]
  - Injection site erythema [Recovered/Resolved]
  - Headache [Recovered/Resolved]
  - Feeling abnormal [Unknown]
  - Dyspnoea [Recovered/Resolved]
  - Contusion [Unknown]
  - Erythema [Recovered/Resolved]
  - Condition aggravated [Unknown]
  - Weight increased [Unknown]
  - Hyperaesthesia [Unknown]
  - Abdominal distension [Unknown]
  - Stress [Unknown]
  - Abdominal pain [Unknown]

NARRATIVE: CASE EVENT DATE: 20250101
